FAERS Safety Report 18864358 (Version 3)
Quarter: 2021Q1

REPORT INFORMATION
  Report Type: Spontaneous
  Country: US (occurrence: US)
  Receive Date: 20210208
  Receipt Date: 20210317
  Transmission Date: 20210420
  Serious: Yes (Life-Threatening, Hospitalization)
  Sender: FDA-Public Use
  Company Number: US-PFIZER INC-2021106926

PATIENT
  Age: 33 Year
  Sex: Female
  Weight: 99.77 kg

DRUGS (2)
  1. RUXIENCE [Suspect]
     Active Substance: RITUXIMAB-PVVR
     Dosage: UNK
  2. ACTHAR [Concomitant]
     Active Substance: CORTICOTROPIN
     Indication: VASCULITIS
     Dosage: UNK

REACTIONS (3)
  - Dyspnoea [Unknown]
  - Cardiac arrest [Unknown]
  - Cerebral disorder [Unknown]
